FAERS Safety Report 7731504-1 (Version None)
Quarter: 2011Q3

REPORT INFORMATION
  Report Type: 
  Country: None (occurrence: None)
  Receive Date: 20110906
  Receipt Date: 20110603
  Transmission Date: 20111222
  Serious: No
  Sender: FDA-Public Use
  Company Number: US-AMGEN-USASP2011028832

PATIENT
  Sex: Female

DRUGS (3)
  1. PROLIA [Suspect]
     Indication: OSTEOPOROSIS POSTMENOPAUSAL
  2. AZOR                               /00595201/ [Concomitant]
  3. LOPRESSOR [Concomitant]

REACTIONS (1)
  - INTRAOCULAR PRESSURE INCREASED [None]
